FAERS Safety Report 8854945 (Version 1)
Quarter: 2012Q4

REPORT INFORMATION
  Report Type: 
  Country: US (occurrence: US)
  Receive Date: 20121023
  Receipt Date: 20121023
  Transmission Date: 20130627
  Serious: No
  Sender: FDA-Public Use
  Company Number: US-009507513-1210USA008791

PATIENT
  Age: 50 Year
  Sex: Female
  Weight: 95.24 kg

DRUGS (7)
  1. PEGINTRON [Suspect]
     Indication: HEPATITIS C
     Dosage: 150 Microgram, qw
     Route: 058
  2. REBETOL [Suspect]
     Indication: HEPATITIS C
     Route: 048
  3. PROZAC [Concomitant]
     Route: 048
  4. PROTONIX [Concomitant]
     Route: 048
  5. IMODIUM [Concomitant]
     Route: 048
  6. TYLENOL [Concomitant]
     Route: 048
  7. BENADRYL [Concomitant]
     Route: 048

REACTIONS (7)
  - Decreased appetite [Unknown]
  - Diarrhoea [Unknown]
  - Nausea [Unknown]
  - Vomiting [Unknown]
  - Dehydration [Unknown]
  - Injection site erythema [Unknown]
  - Blood electrolytes decreased [Unknown]
